FAERS Safety Report 5845155-7 (Version None)
Quarter: 2008Q3

REPORT INFORMATION
  Report Type: 
  Country: None (occurrence: None)
  Receive Date: 20080814
  Receipt Date: 20080805
  Transmission Date: 20090109
  Serious: Yes (Hospitalization)
  Sender: FDA-Public Use
  Company Number: PHHY2008CA14444

PATIENT
  Sex: Male

DRUGS (1)
  1. SANDOSTATIN LAR [Suspect]
     Indication: SMALL INTESTINE CARCINOMA
     Dosage: 20 MG, QMO
     Route: 030
     Dates: start: 20060727

REACTIONS (3)
  - DYSURIA [None]
  - RENAL IMPAIRMENT [None]
  - URETERIC OBSTRUCTION [None]
